FAERS Safety Report 4570359-3 (Version None)
Quarter: 2005Q1

REPORT INFORMATION
  Report Type: 
  Country: None (occurrence: None)
  Receive Date: 20050127
  Receipt Date: 20050127
  Transmission Date: 20050727
  Serious: Yes (Other)
  Sender: FDA-Public Use
  Company Number: None

PATIENT
  Age: 26 Year
  Sex: Male
  Weight: 68.4932 kg

DRUGS (1)
  1. VIOXX [Suspect]
     Indication: JUVENILE ARTHRITIS
     Dosage: 25MG  TWICE A DAY ORAL
     Route: 048

REACTIONS (1)
  - NO ADVERSE EFFECT [None]
